FAERS Safety Report 21586469 (Version 8)
Quarter: 2025Q4

REPORT INFORMATION
  Report Type: Spontaneous
  Country: EU (occurrence: EU)
  Receive Date: 20221112
  Receipt Date: 20251118
  Transmission Date: 20260118
  Serious: Yes (Hospitalization, Other)
  Sender: AUROBINDO
  Company Number: EU-TOWA-202203688

PATIENT
  Age: 52 Year
  Sex: Male

DRUGS (2)
  1. CIPROFLOXACIN [Suspect]
     Active Substance: CIPROFLOXACIN
     Indication: Enterobacter infection
     Dosage: UNK (24TH DAY OF ANTIBIOTIC THERAPY)
     Route: 065
  2. VANCOMYCIN [Suspect]
     Active Substance: VANCOMYCIN
     Indication: Enterobacter infection
     Dosage: UNK (24TH DAY OF ANTIBIOTIC THERAPY)
     Route: 065

REACTIONS (7)
  - Drug reaction with eosinophilia and systemic symptoms [Recovering/Resolving]
  - Asthenia [Recovering/Resolving]
  - Rash maculo-papular [Recovering/Resolving]
  - Cough [Recovering/Resolving]
  - Arthralgia [Recovered/Resolved]
  - Pyrexia [Recovering/Resolving]
  - Myalgia [Recovered/Resolved]
